FAERS Safety Report 6602388-X (Version None)
Quarter: 2010Q1

REPORT INFORMATION
  Report Type: 
  Country: None (occurrence: None)
  Receive Date: 20100225
  Receipt Date: 20100217
  Transmission Date: 20100710
  Serious: Yes (Other)
  Sender: FDA-Public Use
  Company Number: B0627418A

PATIENT
  Sex: Female

DRUGS (5)
  1. SERETIDE [Suspect]
     Indication: OBSTRUCTIVE AIRWAYS DISORDER
     Dosage: 250MCG TWICE PER DAY
     Route: 055
     Dates: start: 20100115
  2. BLOPRESS [Concomitant]
     Indication: HYPERTENSION
     Dosage: 8MG PER DAY
     Route: 048
  3. SEDIEL [Concomitant]
     Route: 048
  4. MEVALOTIN [Concomitant]
     Dosage: 2.1MG PER DAY
     Route: 048
  5. ANTICHOLINERGIC [Concomitant]
     Dosage: .9MG PER DAY
     Route: 048

REACTIONS (5)
  - HYPOTENSION [None]
  - MYOCARDIAL ISCHAEMIA [None]
  - PAINFUL RESPIRATION [None]
  - PALPITATIONS [None]
  - SINUS TACHYCARDIA [None]
